FAERS Safety Report 8600737-4 (Version None)
Quarter: 2012Q3

REPORT INFORMATION
  Report Type: 
  Country: None (occurrence: None)
  Receive Date: 20120817
  Receipt Date: 20120807
  Transmission Date: 20120928
  Serious: Yes (Hospitalization)
  Sender: FDA-Public Use
  Company Number: DE-UCBSA-063513

PATIENT
  Sex: Female

DRUGS (3)
  1. ADALIMUMAB [Concomitant]
     Dosage: 40 MG
     Dates: start: 20090801
  2. CIMZIA [Suspect]
     Indication: RHEUMATOID ARTHRITIS
     Dosage: STRENGTH: 200 MG
     Dates: start: 20101201, end: 20110301
  3. RITUXIMAB [Concomitant]
     Dosage: 100 MG
     Dates: start: 20110415

REACTIONS (1)
  - THORACIC VERTEBRAL FRACTURE [None]
